FAERS Safety Report 10046965 (Version 1)
Quarter: 2014Q1

REPORT INFORMATION
  Report Type: Spontaneous
  Country: AU (occurrence: None)
  Receive Date: 20140327
  Receipt Date: 20140327
  Transmission Date: 20141002
  Serious: Yes (Other)
  Sender: FDA-Public Use
  Company Number: 2014AP002311

PATIENT
  Sex: 0

DRUGS (1)
  1. GABAPENTIN (GABAPENTIN) [Suspect]
     Indication: SLEEP APNOEA SYNDROME
     Dosage: 300 MG; UNKNOWN

REACTIONS (1)
  - Respiratory depression [None]
